FAERS Safety Report 24101135 (Version 1)
Quarter: 2024Q3

REPORT INFORMATION
  Report Type: Spontaneous
  Country: CN (occurrence: CN)
  Receive Date: 20240717
  Receipt Date: 20240717
  Transmission Date: 20241016
  Serious: Yes (Other)
  Sender: BOEHRINGER INGELHEIM
  Company Number: CN-BoehringerIngelheim-2024-BI-039144

PATIENT
  Age: 82 Year
  Sex: Female

DRUGS (4)
  1. DABIGATRAN ETEXILATE [Suspect]
     Active Substance: DABIGATRAN ETEXILATE
     Indication: Atrial fibrillation
     Route: 048
  2. METFORMIN [Concomitant]
     Active Substance: METFORMIN HYDROCHLORIDE
     Indication: Type 2 diabetes mellitus
     Route: 048
  3. NIFEDIPINE [Concomitant]
     Active Substance: NIFEDIPINE
     Indication: Hypertension
     Route: 048
  4. ATORVASTATIN [Concomitant]
     Active Substance: ATORVASTATIN
     Indication: Hyperlipidaemia
     Route: 048

REACTIONS (6)
  - Spinal cord injury cervical [Recovered/Resolved]
  - Subdural haematoma [Recovered/Resolved]
  - Dysuria [Recovered/Resolved]
  - Dyschezia [Recovered/Resolved]
  - Spontaneous haematoma [Recovered/Resolved]
  - Coagulation test abnormal [Recovered/Resolved with Sequelae]

NARRATIVE: CASE EVENT DATE: 20220426
